FAERS Safety Report 5552077-8 (Version None)
Quarter: 2007Q4

REPORT INFORMATION
  Report Type: 
  Country: None (occurrence: None)
  Receive Date: 20071212
  Receipt Date: 20070607
  Transmission Date: 20080405
  Serious: No
  Sender: FDA-Public Use
  Company Number: US-AMGEN-KDL221761

PATIENT
  Sex: Male
  Weight: 99 kg

DRUGS (4)
  1. ENBREL [Suspect]
     Indication: RHEUMATOID ARTHRITIS
     Route: 058
     Dates: start: 20060501
  2. PLAVIX [Concomitant]
  3. CRESTOR [Concomitant]
  4. ZETIA [Concomitant]

REACTIONS (1)
  - HEPATIC ENZYME INCREASED [None]
